FAERS Safety Report 16597578 (Version 1)
Quarter: 2019Q3

REPORT INFORMATION
  Report Type: Report from Study
  Country: ES (occurrence: ES)
  Receive Date: 20190719
  Receipt Date: 20190719
  Transmission Date: 20191004
  Serious: Yes (Hospitalization)
  Sender: FDA-Public Use
  Company Number: ES-MYLANLABS-2019M1067071

PATIENT
  Age: 86 Year
  Sex: Female

DRUGS (9)
  1. CARVEDILOL. [Concomitant]
     Active Substance: CARVEDILOL
     Dosage: UNK UNK, BID
     Route: 048
     Dates: start: 20170216
  2. URSOBILANE [Concomitant]
     Dosage: UNK
     Route: 048
     Dates: start: 20170216
  3. BEVACIZUMAB. [Suspect]
     Active Substance: BEVACIZUMAB
     Indication: BREAST CANCER METASTATIC
     Dosage: FORM STRENGHT 25 MG/ML
     Route: 042
     Dates: start: 20170221, end: 20170227
  4. DABIGATRAN [Concomitant]
     Active Substance: DABIGATRAN
     Dosage: 110 MILLIGRAM, QD
     Route: 048
     Dates: start: 20170216
  5. ALISKIREN [Concomitant]
     Active Substance: ALISKIREN
     Indication: HYPERTENSION
     Dosage: UNK
     Route: 048
     Dates: start: 20170216
  6. SEGURIL [Concomitant]
     Active Substance: FUROSEMIDE
     Dosage: 40 MILLIGRAM, QD
     Route: 048
     Dates: start: 20170216
  7. PACLITAXEL. [Suspect]
     Active Substance: PACLITAXEL
     Indication: BREAST CANCER METASTATIC
     Dosage: FORM STRENGHT 6 MG/ML
     Route: 042
     Dates: start: 20170221, end: 20170227
  8. PRADAXA [Suspect]
     Active Substance: DABIGATRAN ETEXILATE MESYLATE
     Indication: PRODUCT USED FOR UNKNOWN INDICATION
     Dosage: UNK
     Route: 065
  9. EPLERENONA [Concomitant]
     Active Substance: EPLERENONE
     Indication: CARDIAC FAILURE CONGESTIVE
     Dosage: UNK
     Route: 048
     Dates: start: 20170216

REACTIONS (5)
  - Cerebrovascular accident [Recovered/Resolved]
  - Aphasia [Not Recovered/Not Resolved]
  - Hypertension [Not Recovered/Not Resolved]
  - Dysphagia [Not Recovered/Not Resolved]
  - Nasopharyngitis [Recovered/Resolved]

NARRATIVE: CASE EVENT DATE: 20170227
